FAERS Safety Report 6358934-7 (Version None)
Quarter: 2009Q3

REPORT INFORMATION
  Report Type: 
  Country: None (occurrence: None)
  Receive Date: 20090914
  Receipt Date: 20090828
  Transmission Date: 20100115
  Serious: Yes (Other)
  Sender: FDA-Public Use
  Company Number: 2009002612

PATIENT
  Age: 67 Year
  Sex: Male

DRUGS (2)
  1. TARCEVA [Suspect]
     Indication: PANCREATIC CARCINOMA
     Dosage: (QD), ORAL
     Route: 048
     Dates: start: 20090805, end: 20090801
  2. GRAPEFRUIT JUICE (CITRUS PARADISI FRUIT JUICE) [Suspect]

REACTIONS (3)
  - C-REACTIVE PROTEIN INCREASED [None]
  - PYREXIA [None]
  - RASH [None]
